FAERS Safety Report 5565172-4 (Version None)
Quarter: 2007Q4

REPORT INFORMATION
  Report Type: 
  Country: None (occurrence: None)
  Receive Date: 20071213
  Receipt Date: 20071213
  Transmission Date: 20080405
  Serious: Yes (Disabling)
  Sender: FDA-Public Use
  Company Number: None

PATIENT
  Age: 2 Year
  Sex: Female
  Weight: 15.4223 kg

DRUGS (2)
  1. SUPRAX [Suspect]
     Indication: URINARY TRACT INFECTION
     Dosage: 1/2 TEASPOON EVERY 12 HOURS PO
     Route: 048
     Dates: start: 20070913, end: 20070915
  2. ZYRTEC [Concomitant]

REACTIONS (3)
  - BACK PAIN [None]
  - MASS [None]
  - SPINAL DISORDER [None]
